FAERS Safety Report 7810491-1 (Version None)
Quarter: 2011Q4

REPORT INFORMATION
  Report Type: 
  Country: None (occurrence: None)
  Receive Date: 20111012
  Receipt Date: 20111003
  Transmission Date: 20120403
  Serious: Yes (Hospitalization, Other)
  Sender: FDA-Public Use
  Company Number: US-ASTRAZENECA-2011SE51788

PATIENT
  Age: 47 Year
  Sex: Female
  Weight: 77.1 kg

DRUGS (13)
  1. SEROQUEL [Suspect]
     Indication: BIPOLAR DISORDER
     Route: 048
     Dates: start: 20060101
  2. SEROQUEL [Suspect]
     Indication: POST-TRAUMATIC STRESS DISORDER
     Route: 048
     Dates: start: 20060101
  3. SEROQUEL [Suspect]
     Route: 048
  4. SEROQUEL [Suspect]
     Route: 048
  5. SEROQUEL [Suspect]
     Route: 048
  6. ANEBALEX [Concomitant]
     Indication: BLADDER DISORDER
  7. SEROQUEL [Suspect]
     Indication: ANXIETY
     Route: 048
     Dates: start: 20060101
  8. KLONOPIN [Suspect]
     Indication: ANXIETY
     Route: 065
  9. SEROQUEL [Suspect]
     Route: 048
  10. VENTOLIN [Concomitant]
     Indication: ASTHMA
  11. SEROQUEL [Suspect]
     Route: 048
  12. IBUPROFEN [Concomitant]
     Indication: PAIN
  13. SEROQUEL [Suspect]
     Route: 048

REACTIONS (18)
  - HYPERTONIC BLADDER [None]
  - OVERDOSE [None]
  - DISTURBANCE IN ATTENTION [None]
  - ADVERSE EVENT [None]
  - SUICIDAL IDEATION [None]
  - ASTHMA [None]
  - DRUG INEFFECTIVE [None]
  - ANXIETY [None]
  - INFLUENZA [None]
  - RESTLESS LEGS SYNDROME [None]
  - INSOMNIA [None]
  - AGITATION [None]
  - DISTURBANCE IN SOCIAL BEHAVIOUR [None]
  - MOOD SWINGS [None]
  - ACTIVITIES OF DAILY LIVING IMPAIRED [None]
  - PAIN [None]
  - MALAISE [None]
  - DRUG DOSE OMISSION [None]
